FAERS Safety Report 15854459 (Version 1)
Quarter: 2019Q1

REPORT INFORMATION
  Report Type: Spontaneous
  Country: TR (occurrence: TR)
  Receive Date: 20190122
  Receipt Date: 20190122
  Transmission Date: 20190417
  Serious: Yes (Other)
  Sender: FDA-Public Use
  Company Number: PHHY2019TR012852

PATIENT
  Age: 50 Year
  Sex: Male

DRUGS (1)
  1. MYFORTIC [Suspect]
     Active Substance: MYCOPHENOLATE SODIUM
     Indication: RENAL TRANSPLANT
     Dosage: 2 DF, BID
     Route: 065
     Dates: start: 20180403

REACTIONS (3)
  - Myocardial infarction [Unknown]
  - Cardiac disorder [Unknown]
  - General physical health deterioration [Unknown]
